FAERS Safety Report 9784219 (Version 4)
Quarter: 2014Q1

REPORT INFORMATION
  Report Type: Report from Study
  Country: US (occurrence: US)
  Receive Date: 20131226
  Receipt Date: 20140117
  Transmission Date: 20141002
  Serious: Yes (Death, Hospitalization)
  Sender: FDA-Public Use
  Company Number: US-ACTELION-A-NJ2013-89427

PATIENT
  Age: 47 Year
  Sex: Female

DRUGS (4)
  1. TRACLEER [Suspect]
     Indication: PULMONARY ARTERIAL HYPERTENSION
     Dosage: UNK
     Route: 048
     Dates: start: 2004
  2. ADCIRCA [Concomitant]
  3. ASA [Concomitant]
  4. PRADAXA [Concomitant]

REACTIONS (6)
  - Cardiac failure congestive [Fatal]
  - Atrial flutter [Recovered/Resolved]
  - Atrial fibrillation [Recovered/Resolved]
  - Swelling [Recovered/Resolved]
  - Fluid retention [Unknown]
  - Local swelling [Unknown]
